FAERS Safety Report 5650190-8 (Version None)
Quarter: 2008Q1

REPORT INFORMATION
  Report Type: 
  Country: None (occurrence: None)
  Receive Date: 20080229
  Receipt Date: 20080218
  Transmission Date: 20080703
  Serious: Yes (Other)
  Sender: FDA-Public Use
  Company Number: JHP200800025

PATIENT
  Age: 22 Year
  Sex: Male

DRUGS (1)
  1. APLISOL DIAGNOSTIC ANTIGEN(TUBERCULIN PPD) INJECTION, 0.1ML [Suspect]
     Indication: TUBERCULIN TEST
     Dosage: SINGLE,INTRADERMAL
     Route: 023

REACTIONS (3)
  - CONDITION AGGRAVATED [None]
  - ERYTHEMA MULTIFORME [None]
  - SKIN REACTION [None]
